FAERS Safety Report 7994192-5 (Version None)
Quarter: 2011Q4

REPORT INFORMATION
  Report Type: 
  Country: None (occurrence: None)
  Receive Date: 20111220
  Receipt Date: 20110204
  Transmission Date: 20120403
  Serious: No
  Sender: FDA-Public Use
  Company Number: US-GLAXOSMITHKLINE-A0884763A

PATIENT
  Age: 59 Year
  Sex: Female

DRUGS (4)
  1. RYTHMOL [Suspect]
     Indication: ARRHYTHMIA
     Dosage: 225MG TWICE PER DAY
     Route: 048
     Dates: end: 20101002
  2. METFORMIN HCL [Concomitant]
  3. HYDROCHLOROTHIAZIDE [Concomitant]
  4. ATENOLOL [Concomitant]

REACTIONS (7)
  - DRUG INEFFECTIVE [None]
  - WHEEZING [None]
  - DYSPNOEA [None]
  - BLOOD GLUCOSE INCREASED [None]
  - PRODUCT QUALITY ISSUE [None]
  - TACHYCARDIA [None]
  - DYSPNOEA EXERTIONAL [None]
